FAERS Safety Report 7590695-6 (Version None)
Quarter: 2011Q3

REPORT INFORMATION
  Report Type: 
  Country: None (occurrence: None)
  Receive Date: 20110705
  Receipt Date: 20110628
  Transmission Date: 20111222
  Serious: Yes (Other)
  Sender: FDA-Public Use
  Company Number: BR-PFIZER INC-2011136539

PATIENT
  Age: 47 Year
  Sex: Male

DRUGS (4)
  1. SUTENT [Suspect]
     Route: 048
  2. SUTENT [Suspect]
  3. SUTENT [Suspect]
     Indication: RENAL CANCER
     Route: 048
  4. SUTENT [Suspect]

REACTIONS (14)
  - GINGIVAL BLEEDING [None]
  - GINGIVAL PAIN [None]
  - APHTHOUS STOMATITIS [None]
  - HAIR COLOUR CHANGES [None]
  - NAUSEA [None]
  - SOMNOLENCE [None]
  - AGEUSIA [None]
  - PAIN IN EXTREMITY [None]
  - PAIN [None]
  - GAIT DISTURBANCE [None]
  - INFLAMMATION [None]
  - YELLOW SKIN [None]
  - UPPER RESPIRATORY TRACT INFLAMMATION [None]
  - PRURITUS GENITAL [None]
